FAERS Safety Report 7705389-3 (Version None)
Quarter: 2011Q3

REPORT INFORMATION
  Report Type: 
  Country: None (occurrence: None)
  Receive Date: 20110823
  Receipt Date: 20110823
  Transmission Date: 20111222
  Serious: Yes (Hospitalization)
  Sender: FDA-Public Use
  Company Number: None

PATIENT
  Age: 80 Year
  Sex: Male
  Weight: 73.6 kg

DRUGS (1)
  1. BUPIVACAINE HCL [Suspect]
     Indication: LOCAL ANAESTHESIA
     Dosage: 4 ML ONCE IV
     Route: 042
     Dates: start: 20110719, end: 20110719

REACTIONS (3)
  - VOMITING PROJECTILE [None]
  - EYE HAEMORRHAGE [None]
  - NAUSEA [None]
